FAERS Safety Report 25543066 (Version 1)
Quarter: 2025Q3

REPORT INFORMATION
  Report Type: Spontaneous
  Country: CN (occurrence: CN)
  Receive Date: 20250711
  Receipt Date: 20250711
  Transmission Date: 20251021
  Serious: Yes (Hospitalization)
  Sender: NOVARTIS
  Company Number: CN-002147023-NVSC2025CN108291

PATIENT
  Age: 56 Year
  Sex: Female
  Weight: 47 kg

DRUGS (3)
  1. CARBAMAZEPINE [Suspect]
     Active Substance: CARBAMAZEPINE
     Indication: Pain
     Dosage: 2 DOSAGE FORM, BID
     Route: 048
     Dates: start: 20250627, end: 20250627
  2. CARBAMAZEPINE [Suspect]
     Active Substance: CARBAMAZEPINE
     Dosage: 1 DOSAGE FORM, BID
     Route: 048
     Dates: start: 20250629, end: 20250629
  3. CARBAMAZEPINE [Suspect]
     Active Substance: CARBAMAZEPINE
     Route: 048
     Dates: start: 20250629

REACTIONS (3)
  - Somnolence [Recovering/Resolving]
  - Dizziness [Recovering/Resolving]
  - Off label use [Unknown]

NARRATIVE: CASE EVENT DATE: 20250627
